FAERS Safety Report 6661578-0 (Version None)
Quarter: 2010Q1

REPORT INFORMATION
  Report Type: 
  Country: None (occurrence: None)
  Receive Date: 20100331
  Receipt Date: 20090227
  Transmission Date: 20100710
  Serious: Yes (Other)
  Sender: FDA-Public Use
  Company Number: US-BRISTOL-MYERS SQUIBB COMPANY-14415368

PATIENT
  Age: 85 Year
  Sex: Male

DRUGS (2)
  1. ERBITUX [Suspect]
     Indication: LIP AND/OR ORAL CAVITY CANCER
     Dosage: TAKEN 800MG
     Route: 042
     Dates: start: 20080425
  2. RADIATION THERAPY [Concomitant]

REACTIONS (1)
  - INFUSION RELATED REACTION [None]
